FAERS Safety Report 24376515 (Version 1)
Quarter: 2024Q3

REPORT INFORMATION
  Report Type: Spontaneous
  Country: US (occurrence: None)
  Receive Date: 20240926
  Receipt Date: 20240926
  Transmission Date: 20241017
  Serious: Yes (unspecified)
  Sender: Public
  Company Number: None

PATIENT
  Age: 73 Year
  Sex: Male

DRUGS (1)
  1. IRON SUCROSE [Suspect]
     Active Substance: IRON SUCROSE
     Indication: Surgery

REACTIONS (6)
  - Anaphylactic reaction [None]
  - Vasoconstriction [None]
  - Hypotension [None]
  - Abdominal pain upper [None]
  - Dyspepsia [None]
  - Infusion related reaction [None]

NARRATIVE: CASE EVENT DATE: 20230512
